FAERS Safety Report 5722039-6 (Version None)
Quarter: 2008Q2

REPORT INFORMATION
  Report Type: 
  Country: None (occurrence: None)
  Receive Date: 20080429
  Receipt Date: 20080421
  Transmission Date: 20081010
  Serious: Yes (Death)
  Sender: FDA-Public Use
  Company Number: US-ELI_LILLY_AND_COMPANY-US200803005669

PATIENT
  Age: 68 Year
  Sex: Male

DRUGS (5)
  1. HUMATROPE [Suspect]
     Indication: PROPHYLAXIS
     Dosage: 0.6 MG, 2/D
     Route: 058
  2. TESTOSTERONE [Concomitant]
     Dosage: 200 MG, WEEKLY (1/W)
     Route: 051
  3. DEHYDROEPIANDROSTERONE [Concomitant]
     Indication: PROPHYLAXIS
     Dosage: 100 MG, DAILY (1/D)
  4. PREDNISONE [Concomitant]
     Dosage: 6 MG, DAILY (1/D)
  5. MESALAMINE [Concomitant]

REACTIONS (1)
  - COLON CANCER METASTATIC [None]
